FAERS Safety Report 11456339 (Version 1)
Quarter: 2015Q3

REPORT INFORMATION
  Report Type: Spontaneous
  Country: NL (occurrence: NL)
  Receive Date: 20150903
  Receipt Date: 20150903
  Transmission Date: 20151125
  Serious: Yes (Other)
  Sender: FDA-Public Use
  Company Number: NL-TEVA-550787ISR

PATIENT
  Age: 4 Year
  Sex: Male

DRUGS (1)
  1. BECLOMETASON NEVEL 50 PCH, NEUSSPRAY 50 MICROGRAM/DOSIS [Suspect]
     Active Substance: BECLOMETHASONE DIPROPIONATE
     Dosage: 200 MICROGRAM DAILY; ONCE PER DAY 2 SPRAYS IN EACH NOSTRIL
     Route: 045
     Dates: start: 201405, end: 201410

REACTIONS (2)
  - Diabetes mellitus [Not Recovered/Not Resolved]
  - Glucose tolerance impaired [Not Recovered/Not Resolved]

NARRATIVE: CASE EVENT DATE: 201412
